FAERS Safety Report 13371221 (Version 1)
Quarter: 2017Q1

REPORT INFORMATION
  Report Type: Spontaneous
  Country: DE (occurrence: DE)
  Receive Date: 20170324
  Receipt Date: 20170324
  Transmission Date: 20170429
  Serious: Yes (Other)
  Sender: FDA-Public Use
  Company Number: GXKR2017DE001856

PATIENT
  Age: 79 Year
  Sex: Female

DRUGS (1)
  1. OMEP [Suspect]
     Active Substance: OMEPRAZOLE
     Indication: PLEURAL DISORDER
     Dosage: 20 MG, QD
     Route: 048

REACTIONS (1)
  - Anal inflammation [Unknown]
